FAERS Safety Report 23397473 (Version 1)
Quarter: 2024Q1

REPORT INFORMATION
  Report Type: Spontaneous
  Country: US (occurrence: None)
  Receive Date: 20240112
  Receipt Date: 20240112
  Transmission Date: 20240409
  Serious: Yes (Other)
  Sender: FDA-Public Use
  Company Number: None

PATIENT
  Age: 70 Year
  Sex: Male
  Weight: 81.19 kg

DRUGS (13)
  1. FARXIGA [Suspect]
     Active Substance: DAPAGLIFLOZIN PROPANEDIOL
     Indication: Blood glucose increased
     Dosage: 1 TABLET ONCE DAILY BY MOUTH
     Route: 048
     Dates: start: 20230906, end: 20231205
  2. TIMOLOL MALEATE [Suspect]
     Active Substance: TIMOLOL MALEATE
     Indication: Intraocular pressure increased
     Dosage: ONCE DROP/BOTH EYES TWICE DAILY DROPS IN BOTH EYES
     Route: 050
     Dates: start: 20231026, end: 20231028
  3. MUPIROCIN [Suspect]
     Active Substance: MUPIROCIN
  4. OMEPRAZOLE [Concomitant]
     Active Substance: OMEPRAZOLE
  5. EPLERENONE [Concomitant]
     Active Substance: EPLERENONE
  6. MATZIM LA [Concomitant]
     Active Substance: DILTIAZEM HYDROCHLORIDE
  7. LATANOPROST [Concomitant]
     Active Substance: LATANOPROST
  8. TIMOLOL MALEATE [Concomitant]
  9. MINERALS\VITAMINS [Concomitant]
     Active Substance: MINERALS\VITAMINS
  10. SUPER UBIQUINOL COQ10 [Concomitant]
  11. SUPER OMEGA 3 PLUS [Concomitant]
  12. OCUVITE [Concomitant]
     Active Substance: VITAMINS
  13. STRAIN PROBIOTIC [Concomitant]

REACTIONS (7)
  - Aphonia [None]
  - Somnolence [None]
  - Hyperhidrosis [None]
  - Vision blurred [None]
  - Rash [None]
  - Pruritus [None]
  - Application site reaction [None]

NARRATIVE: CASE EVENT DATE: 20231009
